FAERS Safety Report 6009193-6 (Version None)
Quarter: 2008Q4

REPORT INFORMATION
  Report Type: 
  Country: None (occurrence: None)
  Receive Date: 20081217
  Receipt Date: 20081209
  Transmission Date: 20090506
  Serious: Yes (Hospitalization)
  Sender: FDA-Public Use
  Company Number: JP-GENENTECH-270269

PATIENT

DRUGS (2)
  1. RITUXAN [Suspect]
     Indication: CONGENITAL APLASTIC ANAEMIA
  2. PREDNISOLONE [Suspect]
     Indication: CONGENITAL APLASTIC ANAEMIA

REACTIONS (1)
  - MYELODYSPLASTIC SYNDROME [None]
